FAERS Safety Report 17818622 (Version 4)
Quarter: 2020Q2

REPORT INFORMATION
  Report Type: Spontaneous
  Country: DE (occurrence: DE)
  Receive Date: 20200522
  Receipt Date: 20200629
  Transmission Date: 20200714
  Serious: Yes (Hospitalization, Other)
  Sender: FDA-Public Use
  Company Number: DE-MYLANLABS-2020M1050464

PATIENT
  Age: 56 Year
  Sex: Female

DRUGS (4)
  1. CINACALCET HYDROCHLORIDE. [Suspect]
     Active Substance: CINACALCET HYDROCHLORIDE
     Dosage: 60 MILLIGRAM, QD
  2. CINACALCET HYDROCHLORIDE. [Suspect]
     Active Substance: CINACALCET HYDROCHLORIDE
     Indication: HYPERPARATHYROIDISM PRIMARY
     Dosage: 30 MILLIGRAM, QD
  3. ZOLEDRONIC ACID [Concomitant]
     Active Substance: ZOLEDRONIC ACID
     Indication: HYPERPARATHYROIDISM PRIMARY
  4. ZOLEDRONIC ACID [Concomitant]
     Active Substance: ZOLEDRONIC ACID
     Indication: HYPERCALCAEMIA
     Dosage: 5 MILLIGRAM INFUSION

REACTIONS (9)
  - Discomfort [Recovering/Resolving]
  - Swelling [Recovering/Resolving]
  - Haematoma [Unknown]
  - Hypocalcaemia [Recovered/Resolved]
  - Cyst [Recovered/Resolved]
  - Parathyroid tumour benign [Unknown]
  - Treatment failure [Unknown]
  - Back pain [Unknown]
  - Drug ineffective [Unknown]
